FAERS Safety Report 6921061-1 (Version None)
Quarter: 2010Q3

REPORT INFORMATION
  Report Type: 
  Country: None (occurrence: None)
  Receive Date: 20100812
  Receipt Date: 20100804
  Transmission Date: 20110219
  Serious: Yes (Hospitalization)
  Sender: FDA-Public Use
  Company Number: CO-ROCHE-718971

PATIENT
  Sex: Female

DRUGS (2)
  1. XELODA [Suspect]
     Indication: BREAST CANCER
     Dosage: FREQUENCY: EVERYDAY
     Route: 048
     Dates: start: 20090604
  2. OMEPRAZOLE [Concomitant]
     Dosage: FREQUENCY: EVERYDAY
     Route: 048

REACTIONS (1)
  - CONVULSION [None]
